FAERS Safety Report 7411414-X (Version None)
Quarter: 2011Q2

REPORT INFORMATION
  Report Type: 
  Country: None (occurrence: None)
  Receive Date: 20110413
  Receipt Date: 20100809
  Transmission Date: 20111010
  Serious: Yes (Death, Hospitalization)
  Sender: FDA-Public Use
  Company Number: US-BRISTOL-MYERS SQUIBB COMPANY-15216781

PATIENT
  Age: 51 Year
  Sex: Male
  Weight: 86 kg

DRUGS (4)
  1. ERBITUX [Suspect]
     Indication: TONGUE NEOPLASM MALIGNANT STAGE UNSPECIFIED
     Dosage: 75 ML/HOUR
     Route: 042
     Dates: start: 20090826
  2. GLIPIZIDE [Concomitant]
     Dosage: 2DF:2TABS
     Route: 048
     Dates: start: 20090826
  3. BENADRYL [Concomitant]
     Indication: PREMEDICATION
     Route: 042
  4. TYLENOL EXTRA STRENGTH [Concomitant]
     Indication: PREMEDICATION
     Dosage: 2DF:2TABS 1 TAB: 500 MG
     Route: 048
     Dates: start: 20090826

REACTIONS (1)
  - ANAPHYLACTIC REACTION [None]
